FAERS Safety Report 5522854-8 (Version None)
Quarter: 2007Q4

REPORT INFORMATION
  Report Type: 
  Country: None (occurrence: None)
  Receive Date: 20071115
  Receipt Date: 20071102
  Transmission Date: 20080405
  Serious: Yes (Hospitalization)
  Sender: FDA-Public Use
  Company Number: 100#08#2007-04604

PATIENT
  Age: 23 Year
  Sex: Male

DRUGS (1)
  1. CARBAMAZEPINE [Suspect]
     Indication: EPILEPSY
     Dosage: 200 MG

REACTIONS (7)
  - CYTOMEGALOVIRUS INFECTION [None]
  - DRUG INTERACTION [None]
  - DRUG RASH WITH EOSINOPHILIA AND SYSTEMIC SYMPTOMS [None]
  - EPIDERMAL NECROSIS [None]
  - GENERAL PHYSICAL HEALTH DETERIORATION [None]
  - HEPATITIS VIRAL [None]
  - LYMPHADENOPATHY [None]
